FAERS Safety Report 6030004-7 (Version None)
Quarter: 2009Q1

REPORT INFORMATION
  Report Type: 
  Country: None (occurrence: None)
  Receive Date: 20090105
  Receipt Date: 20090105
  Transmission Date: 20090719
  Serious: Yes (Life-Threatening)
  Sender: FDA-Public Use
  Company Number: None

PATIENT
  Sex: Male
  Weight: 99.7913 kg

DRUGS (2)
  1. COREG [Suspect]
     Dates: start: 20080701, end: 20081231
  2. COREG [Suspect]

REACTIONS (2)
  - ATRIAL FIBRILLATION [None]
  - DYSPNOEA EXERTIONAL [None]
